FAERS Safety Report 4864865-1 (Version None)
Quarter: 2005Q4

REPORT INFORMATION
  Report Type: 
  Country: None (occurrence: None)
  Receive Date: 20051201
  Receipt Date: 20050719
  Transmission Date: 20060501
  Serious: No
  Sender: FDA-Public Use
  Company Number: 2005PV000493

PATIENT
  Age: 66 Year
  Sex: Female
  Weight: 131.0895 kg

DRUGS (17)
  1. BYETTA [Suspect]
     Indication: DIABETES MELLITUS NON-INSULIN-DEPENDENT
     Dosage: 5 MCG; BID; SC
     Route: 058
     Dates: start: 20050710
  2. HYZAAR [Suspect]
     Indication: HYPERTENSION
     Dosage: 125 MG; QD, PO
     Route: 048
  3. REGULAR INSULIN [Concomitant]
  4. ATENOLOL [Concomitant]
  5. METFORMIN [Concomitant]
  6. GLYBURIDE [Concomitant]
  7. SYNTHROID [Concomitant]
  8. K-DUR 10 [Concomitant]
  9. LASIX [Concomitant]
  10. MAGNESIUM [Concomitant]
  11. ECOTRIN [Concomitant]
  12. DYNACIRC [Concomitant]
  13. VITAMIN B6 [Concomitant]
  14. ASCORBIC ACID [Concomitant]
  15. VITAMIN E [Concomitant]
  16. CALCIUM GLUCONATE [Concomitant]
  17. CHROMIUM PICOLINATE [Concomitant]

REACTIONS (3)
  - ABDOMINAL DISTENSION [None]
  - BLOOD GLUCOSE DECREASED [None]
  - CONSTIPATION [None]
